FAERS Safety Report 24981784 (Version 1)
Quarter: 2025Q1

REPORT INFORMATION
  Report Type: Spontaneous
  Country: US (occurrence: None)
  Receive Date: 20250217
  Receipt Date: 20250217
  Transmission Date: 20250408
  Serious: Yes (unspecified)
  Sender: FDA-CTU
  Company Number: None

PATIENT
  Age: 68 Year
  Sex: Male

DRUGS (1)
  1. GAMUNEX-C [Suspect]
     Active Substance: HUMAN IMMUNOGLOBULIN G

REACTIONS (8)
  - Pruritus [None]
  - Pruritus [None]
  - Pruritus [None]
  - Cough [None]
  - Infusion [None]
  - Throat irritation [None]
  - Productive cough [None]
  - Wheezing [None]

NARRATIVE: CASE EVENT DATE: 20250127
